FAERS Safety Report 11271925 (Version 1)
Quarter: 2015Q3

REPORT INFORMATION
  Report Type: Spontaneous
  Country: US (occurrence: None)
  Receive Date: 20150713
  Receipt Date: 20150713
  Transmission Date: 20151125
  Serious: No
  Sender: FDA-Public Use
  Company Number: None

PATIENT
  Age: 52 Year
  Sex: Female
  Weight: 55.34 kg

DRUGS (4)
  1. AMBIEN [Concomitant]
     Active Substance: ZOLPIDEM TARTRATE
  2. COLLNIPAN [Concomitant]
  3. REMERON [Concomitant]
     Active Substance: MIRTAZAPINE
  4. ANTABUSE [Suspect]
     Active Substance: DISULFIRAM

REACTIONS (6)
  - Agitation [None]
  - Extrasystoles [None]
  - Feeling abnormal [None]
  - Personality change [None]
  - Initial insomnia [None]
  - Hypersomnia [None]

NARRATIVE: CASE EVENT DATE: 20150709
